FAERS Safety Report 11241025 (Version 3)
Quarter: 2015Q3

REPORT INFORMATION
  Report Type: Spontaneous
  Country: US (occurrence: US)
  Receive Date: 20150706
  Receipt Date: 20150721
  Transmission Date: 20151125
  Serious: Yes (Other)
  Sender: FDA-Public Use
  Company Number: US-LEO PHARMA-235357

PATIENT
  Age: 43 Year
  Sex: Female

DRUGS (1)
  1. PICATO [Suspect]
     Active Substance: INGENOL MEBUTATE
     Indication: ACTINIC KERATOSIS

REACTIONS (5)
  - Paraesthesia [Recovered/Resolved]
  - Swollen tongue [Recovered/Resolved]
  - Tongue pruritus [Recovered/Resolved]
  - Paraesthesia oral [Recovered/Resolved]
  - Incorrect drug administration duration [Unknown]
